FAERS Safety Report 26192188 (Version 1)
Quarter: 2025Q4

REPORT INFORMATION
  Report Type: Spontaneous
  Country: US (occurrence: US)
  Receive Date: 20251223
  Receipt Date: 20251223
  Transmission Date: 20260117
  Serious: No
  Sender: FRESENIUS KABI
  Company Number: US-FreseniusKabi-FK202517017

PATIENT
  Age: 31 Year
  Sex: Female

DRUGS (4)
  1. CHORIONIC GONADOTROPIN [Suspect]
     Active Substance: CHORIOGONADOTROPIN ALFA
     Indication: Ovulation induction
     Dosage: FOA: INJECTION?FREQUENCY: ONCE
     Route: 030
  2. GONAL-F [Concomitant]
     Active Substance: FOLLITROPIN
     Indication: Infertility
  3. GANIRELIX [Concomitant]
     Active Substance: GANIRELIX
     Indication: Infertility
  4. MENOPUR [Concomitant]
     Active Substance: FOLLITROPIN\LUTEINIZING HORMONE
     Indication: Infertility

REACTIONS (1)
  - Drug ineffective [Unknown]
